FAERS Safety Report 23396350 (Version 2)
Quarter: 2024Q1

REPORT INFORMATION
  Report Type: Spontaneous
  Country: US (occurrence: US)
  Receive Date: 20240112
  Receipt Date: 20240229
  Transmission Date: 20240410
  Serious: Yes (Other)
  Sender: FDA-Public Use
  Company Number: US-SUN PHARMACEUTICAL INDUSTRIES LTD-2023R1-426722

PATIENT
  Age: 7 Decade
  Sex: Female

DRUGS (3)
  1. CIPRO [Interacting]
     Active Substance: CIPROFLOXACIN HYDROCHLORIDE
     Indication: Prophylaxis
     Dosage: UNK
     Route: 065
  2. DIFLUCAN [Interacting]
     Active Substance: FLUCONAZOLE
     Indication: Prophylaxis
     Dosage: UNK
     Route: 065
  3. AVATROMBOPAG [Suspect]
     Active Substance: AVATROMBOPAG
     Indication: Neutropenia
     Dosage: 20 MILLIGRAM, DAILY
     Route: 065

REACTIONS (3)
  - Drug interaction [Unknown]
  - Lactic acidosis [Recovered/Resolved]
  - Thrombocytopenia [Unknown]
